FAERS Safety Report 9825294 (Version 4)
Quarter: 2014Q2

REPORT INFORMATION
  Report Type: Spontaneous
  Country: JP (occurrence: JP)
  Receive Date: 20140117
  Receipt Date: 20140411
  Transmission Date: 20141212
  Serious: Yes (Life-Threatening)
  Sender: FDA-Public Use
  Company Number: JP-ASTRAZENECA-2013SE92438

PATIENT
  Age: 76 Year
  Sex: Male
  Weight: 61 kg

DRUGS (15)
  1. NEXIUM [Suspect]
     Route: 048
     Dates: start: 20131108, end: 20131217
  2. DIART [Suspect]
     Indication: POLYURIA
     Route: 048
     Dates: start: 20131211, end: 20131218
  3. FEBURIC [Suspect]
     Indication: HYPERURICAEMIA
     Route: 048
     Dates: start: 20131101, end: 20131218
  4. BAKTAR [Suspect]
     Indication: PROPHYLAXIS
     Route: 048
     Dates: start: 20131118
  5. D-SORBITOL [Concomitant]
     Indication: CONSTIPATION
     Route: 048
     Dates: start: 20131030, end: 20131218
  6. ALDACTONE A [Concomitant]
     Indication: POLYURIA
     Route: 048
     Dates: start: 20131101, end: 20131218
  7. CARDENALIN [Concomitant]
     Indication: CARDIAC FAILURE
     Route: 048
     Dates: start: 20131030
  8. CRAVIT [Concomitant]
     Indication: INFECTION
     Route: 048
     Dates: start: 20131107, end: 20131119
  9. FERROMIA [Concomitant]
     Indication: IRON DEFICIENCY ANAEMIA
     Route: 048
     Dates: start: 20131105, end: 20131218
  10. MAINTATE [Concomitant]
     Indication: CARDIAC FAILURE
     Route: 048
     Dates: start: 20131101
  11. WARFARIN [Concomitant]
     Indication: ATRIAL FIBRILLATION
     Route: 048
     Dates: start: 20131101
  12. CONIEL [Concomitant]
     Indication: CARDIAC FAILURE
     Route: 048
     Dates: start: 20131029
  13. COCARL [Concomitant]
     Indication: PAIN
     Route: 048
     Dates: start: 20131217, end: 20131217
  14. ONEALFA [Concomitant]
     Indication: PROPHYLAXIS
     Route: 048
     Dates: start: 20131118
  15. PREDONINE [Concomitant]
     Indication: HENOCH-SCHONLEIN PURPURA NEPHRITIS
     Route: 048

REACTIONS (1)
  - Pancreatitis acute [Recovering/Resolving]
